FAERS Safety Report 11925995 (Version 1)
Quarter: 2016Q1

REPORT INFORMATION
  Report Type: Spontaneous
  Country: US (occurrence: US)
  Receive Date: 20160119
  Receipt Date: 20160119
  Transmission Date: 20160526
  Serious: Yes (Other)
  Sender: FDA-Public Use
  Company Number: US-BEH-2016057627

PATIENT
  Sex: Female
  Weight: 60 kg

DRUGS (36)
  1. CIPROFLOXACIN. [Concomitant]
     Active Substance: CIPROFLOXACIN
  2. DIPHENHYDRAMINE. [Concomitant]
     Active Substance: DIPHENHYDRAMINE
  3. MULTIVITAMIN [Concomitant]
     Active Substance: VITAMINS
  4. CHERATUSSIN [Concomitant]
     Active Substance: AMMONIUM CHLORIDE\DEXTROMETHORPHAN\SODIUM CITRATE
  5. AMBIEN [Concomitant]
     Active Substance: ZOLPIDEM TARTRATE
  6. NASONEX [Concomitant]
     Active Substance: MOMETASONE FUROATE
  7. CALCIUM [Concomitant]
     Active Substance: CALCIUM
  8. IPRATROPIUM [Concomitant]
     Active Substance: IPRATROPIUM
  9. SIMVASTATIN. [Concomitant]
     Active Substance: SIMVASTATIN
  10. ZOLOFT [Concomitant]
     Active Substance: SERTRALINE HYDROCHLORIDE
  11. KLONOPIN [Concomitant]
     Active Substance: CLONAZEPAM
  12. TRAMADOL. [Concomitant]
     Active Substance: TRAMADOL
  13. SINGULAIR [Concomitant]
     Active Substance: MONTELUKAST SODIUM
  14. CEFDINIR. [Concomitant]
     Active Substance: CEFDINIR
  15. LASIX [Concomitant]
     Active Substance: FUROSEMIDE
  16. TOBRAMYCIN. [Concomitant]
     Active Substance: TOBRAMYCIN
  17. EPIPEN [Concomitant]
     Active Substance: EPINEPHRINE
  18. ALBUTEROL. [Concomitant]
     Active Substance: ALBUTEROL
  19. BENZONATATE. [Concomitant]
     Active Substance: BENZONATATE
  20. AMITRIPTYLINE [Concomitant]
     Active Substance: AMITRIPTYLINE
  21. OMEPRAZOLE. [Concomitant]
     Active Substance: OMEPRAZOLE
  22. HIZENTRA [Suspect]
     Active Substance: HUMAN IMMUNOGLOBULIN G
     Indication: IMMUNODEFICIENCY COMMON VARIABLE
     Route: 058
     Dates: start: 20100922
  23. HIZENTRA [Suspect]
     Active Substance: HUMAN IMMUNOGLOBULIN G
     Route: 058
     Dates: start: 20100922
  24. CEFTRIAXONE. [Concomitant]
     Active Substance: CEFTRIAXONE
  25. ACETAMINOPHEN. [Concomitant]
     Active Substance: ACETAMINOPHEN
  26. ALVESCO [Concomitant]
     Active Substance: CICLESONIDE
  27. PREDNISONE. [Concomitant]
     Active Substance: PREDNISONE
  28. LIDOCAINE. [Concomitant]
     Active Substance: LIDOCAINE
  29. METFORMIN [Concomitant]
     Active Substance: METFORMIN HYDROCHLORIDE
  30. QVAR [Concomitant]
     Active Substance: BECLOMETHASONE DIPROPIONATE
  31. GABAPENTIN. [Concomitant]
     Active Substance: GABAPENTIN
  32. ZANTAC [Concomitant]
     Active Substance: RANITIDINE HYDROCHLORIDE
  33. TUSSIONEX PENNKINETIC [Concomitant]
     Active Substance: CHLORPHENIRAMINE\HYDROCODONE
  34. DULERA [Concomitant]
     Active Substance: FORMOTEROL FUMARATE DIHYDRATE\MOMETASONE FUROATE
  35. LORATADINE. [Concomitant]
     Active Substance: LORATADINE
  36. PATANASE [Concomitant]
     Active Substance: OLOPATADINE HYDROCHLORIDE

REACTIONS (1)
  - Stenotrophomonas infection [Unknown]
